FAERS Safety Report 5511210-4 (Version None)
Quarter: 2007Q4

REPORT INFORMATION
  Report Type: 
  Country: None (occurrence: None)
  Receive Date: 20071109
  Receipt Date: 20071030
  Transmission Date: 20080405
  Serious: Yes (Hospitalization, Other)
  Sender: FDA-Public Use
  Company Number: JP-JNJFOC-20070600074

PATIENT
  Sex: Female
  Weight: 50 kg

DRUGS (20)
  1. REMICADE [Suspect]
     Route: 042
  2. REMICADE [Suspect]
     Route: 042
  3. REMICADE [Suspect]
     Route: 042
  4. REMICADE [Suspect]
     Route: 042
  5. REMICADE [Suspect]
     Route: 042
  6. REMICADE [Suspect]
     Route: 042
  7. REMICADE [Suspect]
     Route: 042
  8. REMICADE [Suspect]
     Indication: RHEUMATOID ARTHRITIS
     Route: 042
  9. METHOTREXATE [Concomitant]
     Indication: RHEUMATOID ARTHRITIS
     Route: 048
  10. PREDNISOLONE [Concomitant]
     Route: 048
  11. PREDNISOLONE [Concomitant]
     Route: 048
  12. ANTIHISTAMINES [Concomitant]
     Indication: PROPHYLAXIS
  13. LIVALO [Concomitant]
     Indication: ANGINA PECTORIS
     Route: 048
  14. LIVALO [Concomitant]
     Indication: HYPERTENSION
     Route: 048
  15. NU-LOTAN [Concomitant]
     Indication: ANGINA PECTORIS
     Route: 048
  16. NU-LOTAN [Concomitant]
     Indication: HYPERTENSION
     Route: 048
  17. TRICHLORMETHIAZIDE [Concomitant]
     Indication: ANGINA PECTORIS
     Route: 048
  18. TRICHLORMETHIAZIDE [Concomitant]
     Indication: HYPERTENSION
     Route: 048
  19. ALDACTONE [Concomitant]
     Indication: ANGINA PECTORIS
     Route: 048
  20. ALDACTONE [Concomitant]
     Indication: HYPERTENSION
     Route: 048

REACTIONS (1)
  - PULMONARY TUBERCULOSIS [None]
